FAERS Safety Report 5671865-0 (Version None)
Quarter: 2008Q1

REPORT INFORMATION
  Report Type: 
  Country: None (occurrence: None)
  Receive Date: 20080317
  Receipt Date: 20080317
  Transmission Date: 20080703
  Serious: Yes (Death)
  Sender: FDA-Public Use
  Company Number: None

PATIENT
  Age: 33 Year
  Sex: Male

DRUGS (2)
  1. CYMBALTA [Suspect]
     Indication: DEPRESSION
     Dosage: 60MG ONE A DAY PO
     Route: 048
     Dates: start: 20080103, end: 20080306
  2. CYMBALTA [Suspect]
     Indication: STRESS
     Dosage: 60MG ONE A DAY PO
     Route: 048
     Dates: start: 20080103, end: 20080306

REACTIONS (2)
  - COMPLETED SUICIDE [None]
  - GUN SHOT WOUND [None]
